FAERS Safety Report 9342388 (Version 15)
Quarter: 2017Q3

REPORT INFORMATION
  Report Type: Spontaneous
  Country: US (occurrence: US)
  Receive Date: 20130611
  Receipt Date: 20170821
  Transmission Date: 20171128
  Serious: Yes (Other)
  Sender: FDA-Public Use
  Company Number: US-BAYER-2013-069442

PATIENT
  Age: 35 Year
  Sex: Female
  Weight: 53.97 kg

DRUGS (19)
  1. METOCLOPRAMIDE. [Concomitant]
     Active Substance: METOCLOPRAMIDE
     Dosage: UNK
  2. TIZANIDINE. [Concomitant]
     Active Substance: TIZANIDINE
     Dosage: UNK
  3. FLONASE [Concomitant]
     Active Substance: FLUTICASONE PROPIONATE
     Dosage: UNK
  4. THEOPHYLLINE [Concomitant]
     Active Substance: THEOPHYLLINE ANHYDROUS
     Dosage: UNK
  5. DULOXETINE. [Concomitant]
     Active Substance: DULOXETINE
     Dosage: UNK
  6. DOXYCYCLINE. [Concomitant]
     Active Substance: DOXYCYCLINE
     Indication: LYME DISEASE
  7. MUCINEX DM [Concomitant]
     Active Substance: DEXTROMETHORPHAN HYDROBROMIDE\GUAIFENESIN
     Dosage: UNK
  8. AVELOX [Suspect]
     Active Substance: MOXIFLOXACIN HYDROCHLORIDE
     Indication: SINUSITIS
     Dosage: DAILY DOSE 400 MG
     Route: 048
     Dates: start: 20130425, end: 20130428
  9. CYCLOSPORINE. [Concomitant]
     Active Substance: CYCLOSPORINE
     Dosage: UNK
  10. WARFARIN [Concomitant]
     Active Substance: WARFARIN
     Dosage: UNK
  11. GLIBENCLAMIDE [Concomitant]
     Active Substance: GLYBURIDE
     Dosage: UNK
  12. ROPINIROLE. [Concomitant]
     Active Substance: ROPINIROLE
     Dosage: UNK
  13. CIPRO [Suspect]
     Active Substance: CIPROFLOXACIN HYDROCHLORIDE
     Indication: DIARRHOEA INFECTIOUS
     Dosage: UNK
  14. REMERON [Concomitant]
     Active Substance: MIRTAZAPINE
     Dosage: UNK
  15. AVELOX [Suspect]
     Active Substance: MOXIFLOXACIN HYDROCHLORIDE
     Indication: EAR INFECTION
     Dosage: UNK
     Dates: start: 201305
  16. CLOZAPINE. [Concomitant]
     Active Substance: CLOZAPINE
     Dosage: UNK
  17. METHOTREXATE. [Concomitant]
     Active Substance: METHOTREXATE
     Dosage: UNK
  18. OMEPRAZOLE. [Concomitant]
     Active Substance: OMEPRAZOLE
     Dosage: UNK
  19. FLAGYL [Concomitant]
     Active Substance: METRONIDAZOLE\METRONIDAZOLE HYDROCHLORIDE
     Indication: LYME DISEASE

REACTIONS (47)
  - Asthenia [None]
  - Pain in extremity [None]
  - Fear [None]
  - Foot fracture [None]
  - Mononeuropathy [None]
  - Lethargy [None]
  - Pain in extremity [None]
  - Paraesthesia [None]
  - Emotional distress [None]
  - Tendon pain [None]
  - Tendonitis [None]
  - Neuropathy peripheral [None]
  - Depressed level of consciousness [None]
  - Disturbance in attention [None]
  - Muscle spasms [None]
  - Tendon pain [Recovering/Resolving]
  - Arthritis [None]
  - Arthralgia [None]
  - Arthralgia [None]
  - Joint dislocation [None]
  - Muscle tightness [Recovering/Resolving]
  - Abdominal rigidity [None]
  - Diarrhoea [None]
  - Epigastric discomfort [None]
  - Myalgia [None]
  - Tendonitis [None]
  - Dysstasia [None]
  - Insomnia [None]
  - Hypoaesthesia [None]
  - Toxicity to various agents [Recovering/Resolving]
  - Muscle tightness [Recovering/Resolving]
  - Pain in extremity [Recovering/Resolving]
  - Loss of personal independence in daily activities [None]
  - Asthenia [None]
  - Anxiety [None]
  - Muscular weakness [None]
  - Osteoarthritis [None]
  - Fatigue [None]
  - Multiple injuries [None]
  - Quality of life decreased [None]
  - Patellofemoral pain syndrome [None]
  - Haematochezia [None]
  - Gait disturbance [None]
  - Pain [None]
  - Dyspepsia [None]
  - Toxicity to various agents [None]
  - Fall [None]

NARRATIVE: CASE EVENT DATE: 2013
